FAERS Safety Report 7356401-5 (Version None)
Quarter: 2011Q1

REPORT INFORMATION
  Report Type: 
  Country: None (occurrence: None)
  Receive Date: 20110316
  Receipt Date: 20110308
  Transmission Date: 20110831
  Serious: Yes (Hospitalization, Other)
  Sender: FDA-Public Use
  Company Number: MX-ELI_LILLY_AND_COMPANY-MX201103002580

PATIENT
  Sex: Female

DRUGS (7)
  1. SPIRONOLACTONE [Concomitant]
     Dosage: 100 MG, 3/D
  2. FUROSEMIDE [Concomitant]
     Dosage: 20 MG, 3/D
  3. LANTUS [Concomitant]
     Dosage: 36 IU, UNK
  4. INDERALICI [Concomitant]
     Dosage: 10 MG, EVERY 8 HRS
  5. HUMALOG MIX 75/25 [Suspect]
     Indication: DIABETES MELLITUS
     Dosage: 8 IU, DAILY (1/D)
     Route: 065
     Dates: start: 20100501
  6. LEVOTHYROXINE [Concomitant]
     Dosage: 100 MG, EACH MORNING
  7. OMEPRAZOLE [Concomitant]
     Dosage: 20 MG, EACH MORNING

REACTIONS (4)
  - MOBILITY DECREASED [None]
  - PARALYSIS [None]
  - ABDOMINAL DISTENSION [None]
  - LIVER DISORDER [None]
